FAERS Safety Report 5195740-3 (Version None)
Quarter: 2007Q1

REPORT INFORMATION
  Report Type: 
  Country: None (occurrence: None)
  Receive Date: 20070102
  Receipt Date: 20061225
  Transmission Date: 20070707
  Serious: Yes (Hospitalization)
  Sender: FDA-Public Use
  Company Number: 2006AP06211

PATIENT
  Age: 80 Year
  Sex: Female

DRUGS (2)
  1. IRESSA [Suspect]
     Indication: NON-SMALL CELL LUNG CANCER
     Route: 048
     Dates: end: 20060101
  2. IRESSA [Suspect]
     Route: 048
     Dates: start: 20060101, end: 20060101

REACTIONS (4)
  - EYE PAIN [None]
  - INTERSTITIAL LUNG DISEASE [None]
  - SKIN DISORDER [None]
  - SKIN EROSION [None]
